FAERS Safety Report 11038687 (Version 1)
Quarter: 2015Q2

REPORT INFORMATION
  Report Type: Spontaneous
  Country: CN (occurrence: CN)
  Receive Date: 20150416
  Receipt Date: 20150416
  Transmission Date: 20150821
  Serious: Yes (Hospitalization, Other)
  Sender: FDA-Public Use
  Company Number: CN-PFIZER INC-2015130279

PATIENT
  Age: 3 Year
  Sex: Male
  Weight: 30 kg

DRUGS (1)
  1. ZITHROMAX [Suspect]
     Active Substance: AZITHROMYCIN DIHYDRATE
     Dosage: 1 G, 1X/DAY
     Route: 041
     Dates: start: 20141031, end: 20141101

REACTIONS (4)
  - Anaphylactoid reaction [Recovering/Resolving]
  - Contusion [Recovering/Resolving]
  - Dyspnoea [Recovering/Resolving]
  - Syncope [Recovering/Resolving]

NARRATIVE: CASE EVENT DATE: 20141101
